FAERS Safety Report 5931310-4 (Version None)
Quarter: 2008Q4

REPORT INFORMATION
  Report Type: 
  Country: None (occurrence: None)
  Receive Date: 20081009
  Receipt Date: 20080606
  Transmission Date: 20090506
  Serious: Yes (Hospitalization)
  Sender: FDA-Public Use
  Company Number: PHEH2008US05175

PATIENT
  Sex: Female

DRUGS (1)
  1. ZOMETA [Suspect]

REACTIONS (3)
  - BONE PAIN [None]
  - CHILLS [None]
  - PYREXIA [None]
